FAERS Safety Report 14162923 (Version 1)
Quarter: 2017Q4

REPORT INFORMATION
  Report Type: Spontaneous
  Country: US (occurrence: US)
  Receive Date: 20171106
  Receipt Date: 20171106
  Transmission Date: 20180321
  Serious: Yes (Life-Threatening, Hospitalization)
  Sender: FDA-Public Use
  Company Number: PHHY2017US158308

PATIENT
  Age: 64 Year
  Sex: Female

DRUGS (2)
  1. CARBOPLATIN. [Suspect]
     Active Substance: CARBOPLATIN
     Indication: LUNG NEOPLASM MALIGNANT
     Dosage: UNK
     Route: 065
  2. ETOPOSIDE. [Suspect]
     Active Substance: ETOPOSIDE
     Indication: LUNG NEOPLASM MALIGNANT
     Dosage: UNK
     Route: 065

REACTIONS (10)
  - Megacolon [Unknown]
  - Abdominal pain [Unknown]
  - Large intestinal ulcer [Unknown]
  - Large intestine perforation [Unknown]
  - Nausea [Unknown]
  - Pulmonary embolism [Unknown]
  - Retroperitoneal abscess [Unknown]
  - Pancytopenia [Unknown]
  - Faecaloma [Unknown]
  - Asthenia [Unknown]
